FAERS Safety Report 12484337 (Version 2)
Quarter: 2016Q2

REPORT INFORMATION
  Report Type: Spontaneous
  Country: ES (occurrence: ES)
  Receive Date: 20160621
  Receipt Date: 20160624
  Transmission Date: 20160815
  Serious: Yes (Other)
  Sender: FDA-Public Use
  Company Number: ES-MYLANLABS-2016M1024722

PATIENT

DRUGS (2)
  1. FENTANILO MATRIX MYLAN 100 MICROGRAMOS/HORA PARCHES TRANSD?RMICOS EFG [Suspect]
     Active Substance: FENTANYL
     Indication: PAIN
  2. FENTANILO MATRIX MYLAN 100 MICROGRAMOS/HORA PARCHES TRANSD?RMICOS EFG [Suspect]
     Active Substance: FENTANYL
     Indication: PSORIATIC ARTHROPATHY
     Dosage: UNK
     Route: 062
     Dates: start: 2016, end: 20160613

REACTIONS (2)
  - Product adhesion issue [Unknown]
  - Drug ineffective [Unknown]

NARRATIVE: CASE EVENT DATE: 2016
